FAERS Safety Report 9193337 (Version 2)
Quarter: 2014Q1

REPORT INFORMATION
  Report Type: Spontaneous
  Country: US (occurrence: US)
  Receive Date: 20130327
  Receipt Date: 20140214
  Transmission Date: 20141002
  Serious: Yes (Death, Other)
  Sender: FDA-Public Use
  Company Number: US-TEVA-394314USA

PATIENT
  Age: 44 Year
  Sex: Male
  Weight: 134 kg

DRUGS (4)
  1. FENTANYL [Suspect]
     Indication: PRODUCT USED FOR UNKNOWN INDICATION
  2. METHAMPHETAMINES [Suspect]
  3. ALPRAZOLAM [Suspect]
  4. METHADONE [Suspect]

REACTIONS (4)
  - Drug abuse [Fatal]
  - Hypoxic-ischaemic encephalopathy [Fatal]
  - Toxicity to various agents [Fatal]
  - Unresponsive to stimuli [Not Recovered/Not Resolved]
